FAERS Safety Report 16192546 (Version 2)
Quarter: 2019Q3

REPORT INFORMATION
  Report Type: Spontaneous
  Country: US (occurrence: US)
  Receive Date: 20190412
  Receipt Date: 20190703
  Transmission Date: 20191004
  Serious: No
  Sender: FDA-Public Use
  Company Number: US-SA-2019SA100068

PATIENT
  Age: 48 Year
  Sex: Female
  Weight: 79.37 kg

DRUGS (1)
  1. DUPIXENT [Suspect]
     Active Substance: DUPILUMAB
     Indication: ECZEMA
     Dosage: 300 MG, QOW
     Route: 058
     Dates: start: 20180601

REACTIONS (7)
  - Secretion discharge [Unknown]
  - Incorrect dose administered [Unknown]
  - Skin infection [Unknown]
  - Rash [Unknown]
  - Device issue [Unknown]
  - Dermatitis [Unknown]
  - Erythema [Unknown]

NARRATIVE: CASE EVENT DATE: 20190402
